FAERS Safety Report 9960095 (Version 1)
Quarter: 2014Q1

REPORT INFORMATION
  Report Type: Spontaneous
  Country: US (occurrence: None)
  Receive Date: 20140228
  Receipt Date: 20140228
  Transmission Date: 20141002
  Serious: Yes (Hospitalization)
  Sender: FDA-Public Use
  Company Number: UTC-045035

PATIENT
  Age: 61 Year
  Sex: Female

DRUGS (8)
  1. TYVASO (6 MICROGRAM, AEROSOL FOR INHALATION) (TREPROSTINIL SODIUM) [Suspect]
     Indication: PULMONARY ARTERIAL HYPERTENSION
     Dosage: (54 MCG, 4 IN 1 D)
     Route: 055
     Dates: start: 20121016
  2. ADCIRCA (TADALAFIL) (UNKNOWN) [Concomitant]
  3. ZANTAC (RANITIDINE HYDROCHLORIDE) (UNKNOWN) [Concomitant]
  4. PERCOCET (TYLOX /00446701/) (UNKNOWN) [Concomitant]
  5. ADVAIR (SERETIDE /01420901/) (UNKNOWN) [Concomitant]
  6. CRESTOR (ROSUVASTATIN) (UNKNOWN) [Concomitant]
  7. LASIX (FUROSEMIDE) (UNKNOWN) [Concomitant]
  8. LETAIRIS (AMBRISENTAN) (UNKNOWN) [Concomitant]

REACTIONS (2)
  - Bronchitis [None]
  - Dyspnoea [None]
